FAERS Safety Report 5195724-5 (Version None)
Quarter: 2007Q1

REPORT INFORMATION
  Report Type: 
  Country: None (occurrence: None)
  Receive Date: 20070102
  Receipt Date: 20061221
  Transmission Date: 20070707
  Serious: Yes (Other)
  Sender: FDA-Public Use
  Company Number: GB-GLAXOSMITHKLINE-B0451163A

PATIENT
  Sex: Male

DRUGS (1)
  1. NIQUITIN CQ 4MG LOZENGE [Suspect]
     Dosage: 12LOZ PER DAY
     Route: 065

REACTIONS (1)
  - DEPENDENCE [None]
